FAERS Safety Report 20684854 (Version 1)
Quarter: 2022Q2

REPORT INFORMATION
  Report Type: Spontaneous
  Country: US (occurrence: None)
  Receive Date: 20220406
  Receipt Date: 20220406
  Transmission Date: 20220721
  Serious: Yes (Disabling)
  Sender: FDA-Public Use
  Company Number: None

PATIENT
  Age: 74 Year
  Sex: Male
  Weight: 92.3 kg

DRUGS (7)
  1. EPOGEN [Suspect]
     Active Substance: ERYTHROPOIETIN
     Indication: Product used for unknown indication
     Dosage: OTHER QUANTITY : 2000 UNITS;?OTHER FREQUENCY : EVERY OTHER DAY;?
     Route: 042
     Dates: start: 20220104, end: 20220404
  2. CARVEDILOL [Concomitant]
     Active Substance: CARVEDILOL
  3. ATORVASTATIN [Concomitant]
     Active Substance: ATORVASTATIN
  4. butanamide [Concomitant]
  5. ASPIRIN [Concomitant]
     Active Substance: ASPIRIN
  6. CALCIUM ACETATE [Concomitant]
     Active Substance: CALCIUM ACETATE
  7. IRON [Concomitant]
     Active Substance: IRON

REACTIONS (10)
  - Peripheral swelling [None]
  - Hypoaesthesia [None]
  - Headache [None]
  - Nausea [None]
  - Dizziness [None]
  - Balance disorder [None]
  - Pain in extremity [None]
  - Visual impairment [None]
  - Cardiac disorder [None]
  - Hypertension [None]

NARRATIVE: CASE EVENT DATE: 20220104
